FAERS Safety Report 7962329-X (Version None)
Quarter: 2011Q4

REPORT INFORMATION
  Report Type: 
  Country: None (occurrence: None)
  Receive Date: 20111207
  Receipt Date: 20111201
  Transmission Date: 20120403
  Serious: Yes (Hospitalization, Disabling, Other)
  Sender: FDA-Public Use
  Company Number: US-MERCK-1106USA02916

PATIENT
  Age: 60 Year
  Sex: Female

DRUGS (4)
  1. FOSAMAX [Suspect]
     Indication: OSTEOPOROSIS
     Route: 048
     Dates: start: 19960101, end: 20060101
  2. VITAMINS (UNSPECIFIED) [Concomitant]
     Route: 065
  3. OMEGA-3 MARINE TRIGLYCERIDES [Concomitant]
     Route: 065
  4. UBIDECARENONE [Concomitant]
     Route: 065

REACTIONS (10)
  - ANXIETY [None]
  - HYPOTHYROIDISM [None]
  - BASAL CELL CARCINOMA [None]
  - HYPOTENSION [None]
  - HYPOVOLAEMIA [None]
  - TIBIA FRACTURE [None]
  - INSOMNIA [None]
  - FEMUR FRACTURE [None]
  - APPENDIX DISORDER [None]
  - AUTOIMMUNE THYROIDITIS [None]
